FAERS Safety Report 8972217 (Version 1)
Quarter: 2012Q4

REPORT INFORMATION
  Report Type: Spontaneous
  Country: US (occurrence: None)
  Receive Date: 20121217
  Receipt Date: 20121217
  Transmission Date: 20130627
  Serious: No
  Sender: FDA-Public Use
  Company Number: None

PATIENT

DRUGS (2)
  1. CEFTAROLINE [Suspect]
     Indication: OLECRANON BURSITIS
     Route: 042
     Dates: start: 20120928, end: 20120929
  2. VANCOMYCIN [Suspect]
     Route: 042
     Dates: start: 20120907, end: 20120928

REACTIONS (2)
  - Rash erythematous [None]
  - Rash pruritic [None]
